FAERS Safety Report 8862974 (Version 1)
Quarter: 2012Q4

REPORT INFORMATION
  Report Type: 
  Country: CO (occurrence: CO)
  Receive Date: 20121026
  Receipt Date: 20121026
  Transmission Date: 20130627
  Serious: Yes (Hospitalization)
  Sender: FDA-Public Use
  Company Number: CO-SANOFI-AVENTIS-2012SA077714

PATIENT
  Age: 57 Year
  Sex: Male

DRUGS (9)
  1. LANTUS [Suspect]
     Indication: TYPE 2 DIABETES MELLITUS
     Dosage: Dose:49 unit(s)
     Route: 058
     Dates: start: 201208
  2. APIDRA [Suspect]
     Indication: TYPE 2 DIABETES MELLITUS
     Dosage: dose-25u qd divided into three shots
     Route: 058
     Dates: start: 201208
  3. METFORMIN [Suspect]
     Indication: TYPE 2 DIABETES MELLITUS
     Route: 048
  4. GLIBENCLAMIDE [Suspect]
     Indication: TYPE 2 DIABETES MELLITUS
     Route: 048
  5. CAPTOPRIL [Concomitant]
     Indication: HYPERTENSION
     Route: 048
  6. SALBUTAMOL [Concomitant]
     Indication: COPD
     Route: 055
  7. IPRATROPIUM BROMIDE [Concomitant]
     Indication: COPD
     Route: 055
  8. BECLOMETASONE [Concomitant]
     Indication: COPD
     Route: 055
  9. ACETAMINOPHEN [Concomitant]
     Route: 048

REACTIONS (2)
  - Chronic obstructive pulmonary disease [Recovered/Resolved]
  - Hyperglycaemia [Recovered/Resolved]
